FAERS Safety Report 22146911 (Version 1)
Quarter: 2023Q1

REPORT INFORMATION
  Report Type: Report from Study
  Country: BR (occurrence: BR)
  Receive Date: 20230328
  Receipt Date: 20230328
  Transmission Date: 20230418
  Serious: Yes (Other)
  Sender: FDA-Public Use
  Company Number: BR-JNJFOC-20230356986

PATIENT
  Age: 73 Year
  Sex: Male
  Weight: 58 kg

DRUGS (1)
  1. REMICADE [Suspect]
     Active Substance: INFLIXIMAB
     Indication: Ankylosing spondylitis
     Dosage: 3 AMPOULES
     Route: 041
     Dates: start: 20121223

REACTIONS (2)
  - Tuberculosis [Unknown]
  - Nasal operation [Unknown]
